FAERS Safety Report 16138637 (Version 1)
Quarter: 2019Q1

REPORT INFORMATION
  Report Type: Spontaneous
  Country: US (occurrence: US)
  Receive Date: 20190330
  Receipt Date: 20190330
  Transmission Date: 20190418
  Serious: Yes (Other)
  Sender: FDA-Public Use
  Company Number: US-TEVA-2019-US-1030153

PATIENT
  Sex: Female

DRUGS (2)
  1. PREDNISONE TABLET HEALTHMA/WESTWARD^S [Suspect]
     Active Substance: PREDNISONE
     Route: 065
  2. METHYLPHENIDATE HYDROCHLORIDE EXTENDED RELEASE TABLETS [Suspect]
     Active Substance: METHYLPHENIDATE HYDROCHLORIDE
     Route: 065
     Dates: start: 2005

REACTIONS (2)
  - Anaphylactic reaction [Unknown]
  - Seizure [Unknown]

NARRATIVE: CASE EVENT DATE: 2016
